FAERS Safety Report 9562080 (Version 2)
Quarter: 2013Q3

REPORT INFORMATION
  Report Type: Spontaneous
  Country: US (occurrence: US)
  Receive Date: 20130927
  Receipt Date: 20130927
  Transmission Date: 20140515
  Serious: Yes (Hospitalization, Disabling, Other)
  Sender: FDA-Public Use
  Company Number: US200905006069

PATIENT
  Age: 54 Year
  Sex: Male
  Weight: 90.7 kg

DRUGS (22)
  1. BYETTA PEN DISPOSABLE [Suspect]
     Indication: TYPE 2 DIABETES MELLITUS
  2. BYETTA PEN DISPOSABLE [Suspect]
     Indication: TYPE 2 DIABETES MELLITUS
     Route: 065
     Dates: start: 20061019, end: 20071104
  3. EXENATIDE 5MCG PEN, DISPOSABLE DEVICE [Concomitant]
  4. EXENATIDE 5MCG PEN, DISPOSABLE DEVICE [Concomitant]
  5. LEVEMIR [Concomitant]
     Indication: DIABETES MELLITUS
  6. LEVEMIR [Concomitant]
     Indication: DIABETES MELLITUS
     Dates: start: 200709
  7. NOVOLOG [Concomitant]
     Indication: TYPE 2 DIABETES MELLITUS
     Dates: start: 200610, end: 2008
  8. PRILOSEC [Concomitant]
  9. TRICOR [Concomitant]
  10. ATENOLOL [Concomitant]
  11. HYDROCHLOROTHIAZIDE [Concomitant]
  12. QUINAPRIL [Concomitant]
  13. ROZEREM [Concomitant]
  14. ASPIRIN [Concomitant]
  15. CENTRUM [Concomitant]
     Route: 048
  16. SEROQUEL [Concomitant]
  17. LEXAPRO [Concomitant]
  18. CYMBALTA [Concomitant]
  19. LAMICTAL [Concomitant]
  20. ABILIFY [Concomitant]
  21. IMIPENEM [Concomitant]
  22. FLUCONAZOLE [Concomitant]

REACTIONS (9)
  - Pancreatitis necrotising [Recovered/Resolved]
  - Diabetic ketoacidosis [Unknown]
  - Loss of consciousness [Recovered/Resolved]
  - Coma [Recovered/Resolved]
  - Sepsis [Unknown]
  - Renal injury [Unknown]
  - Mental status changes [Recovered/Resolved]
  - Abdominal pain upper [Unknown]
  - Off label use [Recovered/Resolved]
